FAERS Safety Report 13831581 (Version 1)
Quarter: 2017Q3

REPORT INFORMATION
  Report Type: Spontaneous
  Country: US (occurrence: US)
  Receive Date: 20170803
  Receipt Date: 20170803
  Transmission Date: 20171127
  Serious: No
  Sender: FDA-Public Use
  Company Number: US-IMPAX LABORATORIES, INC-2016-IPXL-01039

PATIENT
  Sex: Female

DRUGS (1)
  1. ORPHENADRINE CITRATE ER TABLETS [Suspect]
     Active Substance: ORPHENADRINE CITRATE
     Indication: FIBROMYALGIA
     Dosage: 100 MG, UNK
     Route: 048

REACTIONS (4)
  - Irritable bowel syndrome [Not Recovered/Not Resolved]
  - Condition aggravated [Not Recovered/Not Resolved]
  - Diarrhoea [Not Recovered/Not Resolved]
  - Coeliac disease [Not Recovered/Not Resolved]

NARRATIVE: CASE EVENT DATE: 2016
